FAERS Safety Report 24371288 (Version 1)
Quarter: 2024Q3

REPORT INFORMATION
  Report Type: Spontaneous
  Country: IN (occurrence: IN)
  Receive Date: 20240927
  Receipt Date: 20240927
  Transmission Date: 20241017
  Serious: Yes (Life-Threatening, Hospitalization)
  Sender: LUPIN
  Company Number: IN-LUPIN HEALTHCARE (UK) LIMITED-2021-20148

PATIENT
  Age: 28 Year
  Sex: Female

DRUGS (12)
  1. LEVETIRACETAM [Suspect]
     Active Substance: LEVETIRACETAM
     Indication: Status epilepticus
     Dosage: 3 GRAM, QD (PER DAY)
     Route: 065
  2. LACOSAMIDE [Suspect]
     Active Substance: LACOSAMIDE
     Indication: Status epilepticus
     Dosage: 200 MILLIGRAM, BID
     Route: 065
  3. KETAMINE [Suspect]
     Active Substance: KETAMINE
     Indication: Status epilepticus
     Dosage: UNK
     Route: 065
  4. MIDAZOLAM [Suspect]
     Active Substance: MIDAZOLAM
     Indication: Status epilepticus
     Dosage: UNK
     Route: 065
  5. THIOPENTAL SODIUM [Suspect]
     Active Substance: THIOPENTAL SODIUM
     Indication: Status epilepticus
     Dosage: UNK
     Route: 065
  6. LAMOTRIGINE [Suspect]
     Active Substance: LAMOTRIGINE
     Indication: Status epilepticus
     Dosage: UNK
     Route: 065
  7. PHENOBARBITAL [Suspect]
     Active Substance: PHENOBARBITAL
     Indication: Status epilepticus
     Dosage: UNK
     Route: 065
  8. VALPROATE [Suspect]
     Active Substance: VALPROIC ACID
     Indication: Status epilepticus
     Dosage: 750 MILLIGRAM, BID (12 HOURLY)
     Route: 065
  9. ZONISAMIDE [Suspect]
     Active Substance: ZONISAMIDE
     Indication: Status epilepticus
     Dosage: UNK
     Route: 065
  10. ZONISAMIDE [Suspect]
     Active Substance: ZONISAMIDE
     Dosage: 400 MILLIGRAM, QD ( GRADUALLY INCREASED TO 400 MG/DAY)
     Route: 065
  11. METHYLPREDNISOLONE [Concomitant]
     Active Substance: METHYLPREDNISOLONE
     Indication: Status epilepticus
     Dosage: 1 GRAM, QD (DAILY)
     Route: 042
  12. METHYLPREDNISOLONE [Concomitant]
     Active Substance: METHYLPREDNISOLONE
     Dosage: UNK ADDITIONAL DOSE
     Route: 065

REACTIONS (1)
  - Drug ineffective [Unknown]
